FAERS Safety Report 16179652 (Version 1)
Quarter: 2019Q2

REPORT INFORMATION
  Report Type: Spontaneous
  Country: US (occurrence: US)
  Receive Date: 20190410
  Receipt Date: 20190410
  Transmission Date: 20190711
  Serious: No
  Sender: FDA-Public Use
  Company Number: US-FERRINGPH-2019FE00244

PATIENT
  Sex: Male

DRUGS (1)
  1. FIRMAGON [Suspect]
     Active Substance: DEGARELIX ACETATE
     Indication: PROSTATE CANCER
     Dosage: 240 MG, ONCE/SINGLE
     Route: 065
     Dates: start: 201812, end: 201812

REACTIONS (3)
  - Blood testosterone abnormal [Unknown]
  - Prostatic specific antigen abnormal [Unknown]
  - Product lot number issue [Unknown]
